FAERS Safety Report 5668971-3 (Version None)
Quarter: 2008Q1

REPORT INFORMATION
  Report Type: 
  Country: None (occurrence: None)
  Receive Date: 20080312
  Receipt Date: 20080312
  Transmission Date: 20080703
  Serious: Yes (Other)
  Sender: FDA-Public Use
  Company Number: None

PATIENT
  Age: 52 Year
  Sex: Female
  Weight: 97.0698 kg

DRUGS (4)
  1. ZICAM HOMEOPATHIC MATRIXX INITIATIVES [Suspect]
     Indication: FATIGUE
     Dosage: SMALL AMOUNT OF GEL USED NO STATED LIMITS NASAL AS NEEDED FOR COLDS
     Route: 045
     Dates: start: 20021010, end: 20080210
  2. ZICAM HOMEOPATHIC MATRIXX INITIATIVES [Suspect]
     Indication: NASOPHARYNGITIS
     Dosage: SMALL AMOUNT OF GEL USED NO STATED LIMITS NASAL AS NEEDED FOR COLDS
     Route: 045
     Dates: start: 20021010, end: 20080210
  3. ZICAM HOMEOPATHIC MATRIXX INITIATIVES [Suspect]
     Indication: PAIN
     Dosage: SMALL AMOUNT OF GEL USED NO STATED LIMITS NASAL AS NEEDED FOR COLDS
     Route: 045
     Dates: start: 20021010, end: 20080210
  4. ZICAM HOMEOPATHIC MATRIXX INITIATIVES [Suspect]
     Indication: SINUS DISORDER
     Dosage: SMALL AMOUNT OF GEL USED NO STATED LIMITS NASAL AS NEEDED FOR COLDS
     Route: 045
     Dates: start: 20021010, end: 20080210

REACTIONS (5)
  - ANOSMIA [None]
  - ANXIETY [None]
  - NASAL DISCOMFORT [None]
  - PAROSMIA [None]
  - SINUSITIS [None]
